FAERS Safety Report 24080795 (Version 3)
Quarter: 2024Q3

REPORT INFORMATION
  Report Type: Report from Study
  Country: US (occurrence: US)
  Receive Date: 20240711
  Receipt Date: 20240826
  Transmission Date: 20241016
  Serious: Yes (Death, Hospitalization, Other)
  Sender: ACADIA PHARMACEUTICALS
  Company Number: US-ACADIA PHARMACEUTICALS INC.-ACA-2024-PIM-002891

PATIENT
  Age: 78 Year
  Sex: Male
  Weight: 50 kg

DRUGS (20)
  1. NUPLAZID [Suspect]
     Active Substance: PIMAVANSERIN TARTRATE
     Indication: Hallucination
     Dosage: 34 MILLIGRAM, QD
     Route: 048
     Dates: start: 20240422, end: 20240814
  2. NUPLAZID [Suspect]
     Active Substance: PIMAVANSERIN TARTRATE
     Indication: Parkinson^s disease psychosis
  3. GOCOVRI [Concomitant]
     Active Substance: AMANTADINE
  4. AMANTADINE [Concomitant]
     Active Substance: AMANTADINE
  5. MIRTAZAPINE [Concomitant]
     Active Substance: MIRTAZAPINE
  6. ARICEPT [Concomitant]
     Active Substance: DONEPEZIL HYDROCHLORIDE
  7. MELATONIN [Concomitant]
     Active Substance: MELATONIN
  8. DONEPEZIL [Concomitant]
     Active Substance: DONEPEZIL\DONEPEZIL HYDROCHLORIDE
  9. CETIRIZINE HYDROCHLORIDE [Concomitant]
     Active Substance: CETIRIZINE HYDROCHLORIDE
  10. DUTASTERIDE [Concomitant]
     Active Substance: DUTASTERIDE
  11. LINACLOTIDE [Concomitant]
     Active Substance: LINACLOTIDE
  12. VITAMINS [Concomitant]
     Active Substance: VITAMINS
  13. DOCUSATE SODIUM [Concomitant]
     Active Substance: DOCUSATE SODIUM
  14. PANTOPRAZOLE [Concomitant]
     Active Substance: PANTOPRAZOLE
  15. MORNIFLUMATE [Concomitant]
     Active Substance: MORNIFLUMATE
  16. ESZOPICLONE [Concomitant]
     Active Substance: ESZOPICLONE
  17. LINZESS [Concomitant]
     Active Substance: LINACLOTIDE
  18. LORAZEPAM [Concomitant]
     Active Substance: LORAZEPAM
  19. QUETIAPINE [Concomitant]
     Active Substance: QUETIAPINE
  20. TAMSULOSIN [Concomitant]
     Active Substance: TAMSULOSIN

REACTIONS (14)
  - Death [Recovered/Resolved]
  - Sepsis [Unknown]
  - Pneumonia aspiration [Unknown]
  - Prostatomegaly [Unknown]
  - Urinary tract infection [Unknown]
  - Dehydration [Unknown]
  - Catheter placement [Unknown]
  - Hip fracture [Not Recovered/Not Resolved]
  - Hip surgery [Not Recovered/Not Resolved]
  - Dehydration [Not Recovered/Not Resolved]
  - Blood creatinine increased [Not Recovered/Not Resolved]
  - Fall [Not Recovered/Not Resolved]
  - Dissociation [Not Recovered/Not Resolved]
  - Muscle spasms [Not Recovered/Not Resolved]

NARRATIVE: CASE EVENT DATE: 20240607
